FAERS Safety Report 5805674-6 (Version None)
Quarter: 2008Q3

REPORT INFORMATION
  Report Type: 
  Country: None (occurrence: None)
  Receive Date: 20080710
  Receipt Date: 20080521
  Transmission Date: 20090109
  Serious: No
  Sender: FDA-Public Use
  Company Number: A0729054A

PATIENT
  Age: 30 Year
  Sex: Female

DRUGS (2)
  1. TYKERB [Suspect]
     Indication: BREAST CANCER
     Dosage: 5TAB THREE TIMES PER DAY
     Route: 048
     Dates: start: 20070515, end: 20070703
  2. XELODA [Concomitant]

REACTIONS (5)
  - ACCIDENTAL OVERDOSE [None]
  - ANOREXIA [None]
  - DIARRHOEA [None]
  - DRUG ADMINISTRATION ERROR [None]
  - WEIGHT DECREASED [None]
